FAERS Safety Report 5947818-1 (Version None)
Quarter: 2008Q4

REPORT INFORMATION
  Report Type: 
  Country: None (occurrence: None)
  Receive Date: 20081110
  Receipt Date: 20081110
  Transmission Date: 20090506
  Serious: Yes (Life-Threatening, Hospitalization, Other)
  Sender: FDA-Public Use
  Company Number: None

PATIENT
  Age: 67 Year
  Sex: Male
  Weight: 73.9363 kg

DRUGS (1)
  1. INFED [Suspect]
     Indication: ANAEMIA
     Dosage: TEST DOSE ONCE
     Dates: start: 20081030, end: 20081030

REACTIONS (3)
  - ANAPHYLACTIC SHOCK [None]
  - INFUSION RELATED REACTION [None]
  - RESPIRATORY FAILURE [None]
